FAERS Safety Report 12585503 (Version 4)
Quarter: 2016Q3

REPORT INFORMATION
  Report Type: Report from Study
  Country: US (occurrence: US)
  Receive Date: 20160725
  Receipt Date: 20160923
  Transmission Date: 20161109
  Serious: Yes (Death, Hospitalization, Other)
  Sender: FDA-Public Use
  Company Number: US-009507513-1607USA008286

PATIENT
  Age: 45 Year
  Sex: Male
  Weight: 79 kg

DRUGS (1)
  1. KEYTRUDA [Suspect]
     Active Substance: PEMBROLIZUMAB
     Indication: CHOLANGIOCARCINOMA
     Dosage: 2 MG/KG, TWO DOSES, TOTAL DAILY DOSE: 160.25 MG
     Route: 042
     Dates: start: 20160610, end: 20160623

REACTIONS (4)
  - Malignant neoplasm progression [Not Recovered/Not Resolved]
  - Product use issue [Unknown]
  - Organ failure [Fatal]
  - Septic shock [Fatal]

NARRATIVE: CASE EVENT DATE: 2016
